FAERS Safety Report 7299913-5 (Version None)
Quarter: 2011Q1

REPORT INFORMATION
  Report Type: 
  Country: None (occurrence: None)
  Receive Date: 20110217
  Receipt Date: 20110210
  Transmission Date: 20110831
  Serious: Yes (Other)
  Sender: FDA-Public Use
  Company Number: FR-PFIZER INC-2011030643

PATIENT
  Age: 70 Year
  Sex: Female

DRUGS (1)
  1. SOLU-MEDROL [Suspect]
     Indication: EYE INFLAMMATION
     Dosage: 1 G, OVER 3 HOURS
     Route: 042

REACTIONS (1)
  - HYPERTENSIVE CRISIS [None]
